FAERS Safety Report 17367357 (Version 1)
Quarter: 2020Q1

REPORT INFORMATION
  Report Type: Spontaneous
  Country: CA (occurrence: CA)
  Receive Date: 20200204
  Receipt Date: 20200204
  Transmission Date: 20200409
  Serious: Yes (Other)
  Sender: FDA-Public Use
  Company Number: CA-TEVA-2020-CA-1178495

PATIENT
  Age: 59 Year
  Sex: Female

DRUGS (2)
  1. ALUMINIUM HYDROXIDE/SODIUM ALGINATE [Suspect]
     Active Substance: ALUMINUM HYDROXIDE\SODIUM ALGINATE
     Indication: PRODUCT USED FOR UNKNOWN INDICATION
     Route: 065
  2. CIPROFLOXACIN. [Suspect]
     Active Substance: CIPROFLOXACIN
     Indication: PYELONEPHRITIS
     Dosage: 1000 MILLIGRAM DAILY;
     Route: 065

REACTIONS (3)
  - Vaginal infection [Recovered/Resolved]
  - Off label use [Recovered/Resolved]
  - Vaginal haemorrhage [Recovered/Resolved]
